FAERS Safety Report 6138017-1 (Version None)
Quarter: 2009Q1

REPORT INFORMATION
  Report Type: 
  Country: None (occurrence: None)
  Receive Date: 20090331
  Receipt Date: 20090323
  Transmission Date: 20090719
  Serious: Yes (Other)
  Sender: FDA-Public Use
  Company Number: US-ASTRAZENECA-2009UW07341

PATIENT
  Age: 69 Year
  Sex: Male
  Weight: 93 kg

DRUGS (7)
  1. CRESTOR [Suspect]
     Route: 048
  2. ASPIRIN [Concomitant]
     Route: 048
  3. CARVILOL [Concomitant]
     Route: 048
  4. DIGOXIN [Concomitant]
     Route: 048
  5. FLOMAX [Concomitant]
     Route: 048
  6. MEDROL [Concomitant]
     Indication: MYALGIA
     Dosage: SLIDING SCALE
     Route: 048
  7. NIASPAN [Concomitant]
     Route: 048

REACTIONS (1)
  - CARDIAC DISORDER [None]
